FAERS Safety Report 8541266-6 (Version None)
Quarter: 2012Q3

REPORT INFORMATION
  Report Type: 
  Country: None (occurrence: None)
  Receive Date: 20120726
  Receipt Date: 20120716
  Transmission Date: 20120928
  Serious: Yes (Hospitalization)
  Sender: FDA-Public Use
  Company Number: FR-PFIZER INC-2012171555

PATIENT
  Age: 67 Year
  Sex: Male
  Weight: 60 kg

DRUGS (6)
  1. FIXICAL [Concomitant]
     Indication: CALCIUM DEFICIENCY
     Dosage: 500 MG, 1X/DAY
     Route: 048
     Dates: start: 20040101
  2. AXITINIB [Suspect]
     Dosage: 7 MG, 2X/DAY
     Route: 048
     Dates: start: 20120614, end: 20120627
  3. CHONDROSULF [Concomitant]
     Indication: OSTEOARTHRITIS
     Dosage: 400 MG, 3X/DAY
     Route: 048
     Dates: start: 20020101, end: 20120709
  4. AXITINIB [Suspect]
     Indication: HEPATIC NEOPLASM MALIGNANT
     Dosage: 5 MG, 2X/DAY
     Route: 048
     Dates: start: 20120531, end: 20120613
  5. AXITINIB [Suspect]
     Dosage: 10 MG, 2X/DAY
     Dates: start: 20120628, end: 20120714
  6. ALODONT [Concomitant]
     Indication: INFECTION PROPHYLAXIS
     Dosage: 2/DAY
     Route: 002
     Dates: start: 20120702

REACTIONS (2)
  - RENAL FAILURE [None]
  - DIARRHOEA [None]
